FAERS Safety Report 8081794-3 (Version None)
Quarter: 2012Q1

REPORT INFORMATION
  Report Type: 
  Country: None (occurrence: None)
  Receive Date: 20120130
  Receipt Date: 20120120
  Transmission Date: 20120608
  Serious: Yes (Hospitalization)
  Sender: FDA-Public Use
  Company Number: US-ASTRAZENECA-2011SE25882

PATIENT
  Age: 58 Year
  Sex: Female
  Weight: 68.9 kg

DRUGS (25)
  1. SEROQUEL XR [Suspect]
     Route: 048
  2. NEXIUM [Suspect]
     Indication: HIATUS HERNIA
     Route: 048
  3. PHENAZOPYRIDINE HCL TAB [Concomitant]
     Indication: BLADDER DISORDER
  4. CYCLOBENZAPR [Concomitant]
     Indication: MUSCLE RELAXANT THERAPY
  5. COUMADIN [Concomitant]
     Indication: CARDIAC DISORDER
  6. HYDROCORTISONE [Concomitant]
     Indication: ADRENAL DISORDER
  7. IMITREX [Concomitant]
  8. SEROQUEL XR [Suspect]
     Route: 048
  9. KLONOPIN [Concomitant]
     Indication: RESTLESS LEGS SYNDROME
  10. PAIN PILLS [Concomitant]
     Indication: PAIN
     Dosage: 5 MG EVERY 4-6 HOUR
     Route: 048
  11. NEXIUM [Suspect]
     Indication: OESOPHAGEAL DISORDER
     Route: 048
  12. SEROQUEL XR [Suspect]
     Indication: BIPOLAR DISORDER
     Route: 048
     Dates: start: 20090101, end: 20110428
  13. SEROQUEL XR [Suspect]
     Route: 048
     Dates: start: 20110501, end: 20110901
  14. SYNTHROID [Concomitant]
     Indication: THYROID DISORDER
  15. LANTUS [Concomitant]
     Indication: DIABETES MELLITUS
  16. IMODIUM [Concomitant]
  17. SEROQUEL XR [Suspect]
     Indication: PSYCHOTIC DISORDER
     Route: 048
     Dates: start: 20090101, end: 20110428
  18. SEROQUEL XR [Suspect]
     Route: 048
     Dates: start: 20110501, end: 20110901
  19. HYDROCODONE BITARTRATE [Concomitant]
     Indication: PAIN
     Dosage: 10/325 DAILY
  20. COUMADIN [Concomitant]
     Indication: THROMBOSIS
  21. DYE HDNA ZOPYRID [Concomitant]
  22. ZONEX [Concomitant]
  23. 2 MUSCLE RELAXANTS [Concomitant]
  24. TRAZODONE HCL [Concomitant]
  25. TRANSIDONE [Concomitant]

REACTIONS (9)
  - HALLUCINATION [None]
  - DISORIENTATION [None]
  - GASTROOESOPHAGEAL REFLUX DISEASE [None]
  - ROAD TRAFFIC ACCIDENT [None]
  - AGITATION [None]
  - DRUG DOSE OMISSION [None]
  - LIGAMENT RUPTURE [None]
  - PSYCHOTIC DISORDER [None]
  - SCREAMING [None]
